FAERS Safety Report 10125960 (Version 2)
Quarter: 2015Q1

REPORT INFORMATION
  Report Type: Other
  Country: US (occurrence: US)
  Receive Date: 20140427
  Receipt Date: 20150219
  Transmission Date: 20150720
  Serious: Yes (Hospitalization, Other)
  Sender: FDA-Public Use
  Company Number: US-GSKPPD-2014GSK029482

PATIENT
  Age: 63 Year
  Sex: Female

DRUGS (8)
  1. AVANDIA [Suspect]
     Active Substance: ROSIGLITAZONE MALEATE
     Indication: DIABETES MELLITUS
     Dosage: DATES OF AVANDIA USE COULD NOT BE CONFIRMED IN RECORDS REVIEWED.
     Route: 048
  2. PLAVIX [Concomitant]
     Active Substance: CLOPIDOGREL BISULFATE
  3. NORVASC [Concomitant]
     Active Substance: AMLODIPINE BESYLATE
  4. DIOVAN [Concomitant]
     Active Substance: VALSARTAN
  5. LASIX [Concomitant]
     Active Substance: FUROSEMIDE
  6. IMDUR [Concomitant]
     Active Substance: ISOSORBIDE MONONITRATE
  7. ASPIRIN. [Concomitant]
     Active Substance: ASPIRIN
  8. LOPRESSOR [Concomitant]
     Active Substance: METOPROLOL TARTRATE

REACTIONS (1)
  - Myocardial infarction [Recovered/Resolved]

NARRATIVE: CASE EVENT DATE: 20101126
